FAERS Safety Report 4880479-1 (Version None)
Quarter: 2005Q4

REPORT INFORMATION
  Report Type: 
  Country: None (occurrence: None)
  Receive Date: 20051223
  Receipt Date: 20051005
  Transmission Date: 20060501
  Serious: No
  Sender: FDA-Public Use
  Company Number: 04P-163-0272846-00

PATIENT
  Age: 66 Year
  Sex: Female
  Weight: 56.6996 kg

DRUGS (12)
  1. HUMIRA [Suspect]
     Indication: RHEUMATOID ARTHRITIS
     Dosage: 40 MG, 1 IN 2 WK, SUBCUTANEOUS
     Route: 058
     Dates: start: 20040701
  2. AMLODIPINE BESYLATE [Concomitant]
  3. CALCIUM GLUCONATE [Concomitant]
  4. VITAMINS [Concomitant]
  5. FISH OIL [Concomitant]
  6. ESOMEPRAZOLE [Concomitant]
  7. ALENDRONATE SODIUM [Concomitant]
  8. SOY MENOPAUSE [Concomitant]
  9. METHOTREXATE [Concomitant]
  10. NAPROXEN SODIUM [Concomitant]
  11. PREDNISONE [Concomitant]
  12. FOLTEX [Concomitant]

REACTIONS (4)
  - INJECTION SITE DISCOMFORT [None]
  - INJECTION SITE ERYTHEMA [None]
  - INJECTION SITE IRRITATION [None]
  - INJECTION SITE PRURITUS [None]
